FAERS Safety Report 10188925 (Version 1)
Quarter: 2014Q2

REPORT INFORMATION
  Report Type: Spontaneous
  Country: US (occurrence: US)
  Receive Date: 20140522
  Receipt Date: 20140522
  Transmission Date: 20141212
  Serious: No
  Sender: FDA-Public Use
  Company Number: US-SA-2014SA029243

PATIENT
  Sex: 0

DRUGS (4)
  1. LANTUS [Suspect]
     Route: 051
  2. JANUMET [Suspect]
     Route: 065
  3. LIPITOR [Suspect]
     Route: 065
  4. ANTIHYPERTENSIVES [Suspect]
     Route: 065

REACTIONS (5)
  - Myalgia [Unknown]
  - Arthralgia [Recovering/Resolving]
  - Rash [Recovering/Resolving]
  - Pain [Recovering/Resolving]
  - Blood glucose increased [Unknown]
